FAERS Safety Report 4340251-8 (Version None)
Quarter: 2004Q1

REPORT INFORMATION
  Report Type: 
  Country: None (occurrence: None)
  Receive Date: 20040329
  Receipt Date: 20031219
  Transmission Date: 20041129
  Serious: No
  Sender: FDA-Public Use
  Company Number: 04P-163-0246108-00

PATIENT
  Age: 57 Year
  Sex: Female
  Weight: 131.5431 kg

DRUGS (9)
  1. HUMIRA [Suspect]
     Indication: RHEUMATOID ARTHRITIS
     Dosage: 40 MG, 1 IN 2 WK, SUBCUTANEOUS
     Route: 058
     Dates: start: 20030901
  2. METOPROLOL [Concomitant]
  3. ;PRATADOME [Concomitant]
  4. INDOMETHACIN [Concomitant]
  5. QUINAPRIL HYDROCHLORIDE [Concomitant]
  6. AMLODIPINE BESILATEHYDROCHLOROTHIAZIDE [Concomitant]
  7. LOSARTAN POTASSIUM [Concomitant]
  8. ASPIRIN [Concomitant]
  9. CENTRUM [Concomitant]

REACTIONS (1)
  - WEIGHT INCREASED [None]
